FAERS Safety Report 6710152-6 (Version None)
Quarter: 2010Q2

REPORT INFORMATION
  Report Type: 
  Country: None (occurrence: None)
  Receive Date: 20100430
  Receipt Date: 20100416
  Transmission Date: 20101027
  Serious: Yes (Other)
  Sender: FDA-Public Use
  Company Number: 010680

PATIENT
  Age: 26 Year
  Sex: Female

DRUGS (2)
  1. VIMPAT [Suspect]
     Indication: PARTIAL SEIZURES
     Dosage: DOSE INCREASED BY 50 MG/ WEEK. MAXIMUM DOSE: 200 MG
     Dates: start: 20090803, end: 20090901
  2. CARBAMAZEPINE [Concomitant]

REACTIONS (1)
  - DRUG INTOLERANCE [None]
